FAERS Safety Report 12903142 (Version 1)
Quarter: 2016Q4

REPORT INFORMATION
  Report Type: Other
  Country: FR (occurrence: FR)
  Receive Date: 20161102
  Receipt Date: 20161102
  Transmission Date: 20170207
  Serious: Yes (Other)
  Sender: FDA-Public Use
  Company Number: FR-CELLTRION INC.-2016FR011109

PATIENT

DRUGS (5)
  1. REMSIMA [Suspect]
     Active Substance: INFLIXIMAB
     Dosage: 600 MG, SINGLE
     Route: 042
     Dates: start: 20160414, end: 20160414
  2. REMSIMA [Suspect]
     Active Substance: INFLIXIMAB
     Indication: CROHN^S DISEASE
     Dosage: 300 MG, SINGLE
     Route: 042
     Dates: start: 20160201, end: 20160201
  3. REMSIMA [Suspect]
     Active Substance: INFLIXIMAB
     Dosage: 600 MG, SINGLE
     Route: 042
     Dates: start: 20160314, end: 20160314
  4. REMSIMA [Suspect]
     Active Substance: INFLIXIMAB
     Dosage: 300 MG, SINGLE
     Route: 042
     Dates: start: 20160215, end: 20160215
  5. DOTAREM [Concomitant]
     Active Substance: GADOTERATE MEGLUMINE
     Dosage: 15 ML, SINGLE
     Dates: start: 20160309

REACTIONS (3)
  - Infusion site rash [Recovered/Resolved]
  - Inappropriate schedule of drug administration [Unknown]
  - Drug ineffective [Unknown]

NARRATIVE: CASE EVENT DATE: 20160414
